FAERS Safety Report 14377521 (Version 2)
Quarter: 2018Q2

REPORT INFORMATION
  Report Type: Spontaneous
  Country: FR (occurrence: FR)
  Receive Date: 20180111
  Receipt Date: 20180604
  Transmission Date: 20180711
  Serious: Yes (Life-Threatening)
  Sender: FDA-Public Use
  Company Number: FR-TEVA-2018-FR-842897

PATIENT
  Age: 38 Year
  Sex: Male
  Weight: 66 kg

DRUGS (11)
  1. LEPTICUR 10 MG, COMPRIME [Suspect]
     Active Substance: TROPATEPINE HYDROCHLORIDE
     Indication: DYSKINESIA
     Route: 048
     Dates: start: 20170208
  2. ALPRAZOLAM. [Suspect]
     Active Substance: ALPRAZOLAM
     Route: 048
     Dates: start: 20170206
  3. DEPAMIDE 300 MG, COMPRIME PELLICULE GASTRO-RESISTANT [Suspect]
     Active Substance: VALPROMIDE
     Indication: SCHIZOPHRENIA
     Route: 048
     Dates: start: 20140125
  4. TRANXENE [Suspect]
     Active Substance: CLORAZEPATE DIPOTASSIUM
     Indication: SCHIZOPHRENIA
     Route: 048
     Dates: start: 20130904, end: 20140724
  5. CLOZAPINE. [Suspect]
     Active Substance: CLOZAPINE
     Indication: SCHIZOPHRENIA
     Dosage: FLEXIBLE DOSING
     Route: 048
     Dates: start: 20100731
  6. VALIUM [Suspect]
     Active Substance: DIAZEPAM
     Route: 048
     Dates: start: 20131231, end: 20140103
  7. PARKINANE L P 5 MG, GELULE A LIBERATION PROLONGEE [Suspect]
     Active Substance: TRIHEXYPHENIDYL HYDROCHLORIDE
     Indication: DYSKINESIA
     Route: 048
     Dates: start: 20130903, end: 20140724
  8. HAVLANE, COMPRIME SECABLE [Suspect]
     Active Substance: LOPRAZOLAM MESILATE
     Route: 048
     Dates: start: 20130903
  9. ARIPIPRAZOLE. [Suspect]
     Active Substance: ARIPIPRAZOLE
     Indication: SCHIZOPHRENIA
     Route: 048
     Dates: start: 20170722
  10. LOXAPAC 25 MG, COMPRIME PELLICULE [Suspect]
     Active Substance: LOXAPINE SUCCINATE
     Indication: SCHIZOPHRENIA
     Route: 048
     Dates: start: 20140103, end: 20140724
  11. PIPORTIL 10 MG, COMPRIME PELLICULE SECABLE [Suspect]
     Active Substance: PIPOTIAZINE
     Indication: SCHIZOPHRENIA
     Route: 048
     Dates: start: 20100731

REACTIONS (1)
  - Non-Hodgkin^s lymphoma [Not Recovered/Not Resolved]

NARRATIVE: CASE EVENT DATE: 20170619
